FAERS Safety Report 10593761 (Version 1)
Quarter: 2014Q4

REPORT INFORMATION
  Report Type: Spontaneous
  Country: US (occurrence: US)
  Receive Date: 20141119
  Receipt Date: 20141119
  Transmission Date: 20150529
  Serious: No
  Sender: FDA-Public Use
  Company Number: US-PFIZER INC-2014314253

PATIENT
  Age: 54 Year
  Sex: Female
  Weight: 47 kg

DRUGS (9)
  1. NEURONTIN [Suspect]
     Active Substance: GABAPENTIN
     Indication: FIBROMYALGIA
  2. ATENOLOL. [Concomitant]
     Active Substance: ATENOLOL
     Dosage: 25 MG, UNK
  3. HYDROCORTISONE. [Concomitant]
     Active Substance: HYDROCORTISONE
     Dosage: 40 MG, UNK
  4. NEURONTIN [Suspect]
     Active Substance: GABAPENTIN
     Indication: INTERVERTEBRAL DISC PROTRUSION
  5. ACETYLSALICYLIC ACID [Concomitant]
     Active Substance: ASPIRIN
     Dosage: 325 MG, UNK
  6. XANAX [Concomitant]
     Active Substance: ALPRAZOLAM
     Dosage: 0.25 MG, UNK
  7. HYDROCODONE [Concomitant]
     Active Substance: HYDROCODONE
     Dosage: 10/325
  8. NEURONTIN [Suspect]
     Active Substance: GABAPENTIN
     Indication: NEURALGIA
     Dosage: 300 MG, 2X/DAY OR 3X/ DAY
     Dates: start: 2014, end: 20140924
  9. NEOMYCIN SULFATE. [Concomitant]
     Active Substance: NEOMYCIN SULFATE
     Dosage: 40 MG, UNK

REACTIONS (6)
  - Dysarthria [Recovered/Resolved]
  - Hangover [Recovered/Resolved]
  - Drug intolerance [Recovered/Resolved]
  - Gait disturbance [Recovered/Resolved]
  - Drug ineffective for unapproved indication [Recovered/Resolved]
  - Feeling drunk [Recovered/Resolved]

NARRATIVE: CASE EVENT DATE: 2014
